FAERS Safety Report 9526947 (Version 1)
Quarter: 2013Q1

REPORT INFORMATION
  Report Type: Spontaneous
  Country: US (occurrence: None)
  Receive Date: 20130305
  Receipt Date: 20130305
  Transmission Date: 20140127
  Serious: Yes (Other)
  Sender: FDA-Public Use
  Company Number: 163-21880-11121423

PATIENT
  Age: 77 Year
  Sex: Male
  Weight: 85.73 kg

DRUGS (3)
  1. REVLIMID [Suspect]
     Indication: PLASMA CELL MYELOMA
     Dosage: 10 MG, 1 IN 1 D, PO
     Route: 048
     Dates: start: 201109
  2. THYROXINE (LEVOTHYROXINE SODIUM) [Concomitant]
  3. DEXAMETHASONE (DEXAMETHASONE) [Concomitant]

REACTIONS (9)
  - Thrombosis [None]
  - Drug intolerance [None]
  - Anxiety [None]
  - Stomatitis [None]
  - Bone pain [None]
  - Neuropathy peripheral [None]
  - Treatment failure [None]
  - Light chain analysis increased [None]
  - Light chain analysis increased [None]
